FAERS Safety Report 5309352-1 (Version None)
Quarter: 2007Q2

REPORT INFORMATION
  Report Type: 
  Country: None (occurrence: None)
  Receive Date: 20070427
  Receipt Date: 20070416
  Transmission Date: 20071010
  Serious: Yes (Other)
  Sender: FDA-Public Use
  Company Number: PHRM2006FR02840

PATIENT
  Age: 75 Year
  Sex: Female
  Weight: 62 kg

DRUGS (5)
  1. TAREG [Suspect]
     Indication: HYPERTENSION
     Dosage: 80 MG, QD
     Route: 048
     Dates: start: 20061002, end: 20061013
  2. ASPEGIC 1000 [Concomitant]
     Indication: CORONARY ARTERY DISEASE
  3. CORVASAL [Concomitant]
     Indication: CORONARY ARTERY DISEASE
  4. TAHOR [Concomitant]
  5. INEGY [Concomitant]
     Indication: CORONARY ARTERY DISEASE

REACTIONS (1)
  - ERYTHEMA MULTIFORME [None]
